FAERS Safety Report 25697994 (Version 1)
Quarter: 2025Q3

REPORT INFORMATION
  Report Type: Spontaneous
  Country: US (occurrence: US)
  Receive Date: 20250819
  Receipt Date: 20250819
  Transmission Date: 20251020
  Serious: No
  Sender: AMGEN
  Company Number: US-AMGEN-USASP2025160523

PATIENT
  Sex: Female

DRUGS (1)
  1. REPATHA [Suspect]
     Active Substance: EVOLOCUMAB
     Indication: Blood cholesterol abnormal
     Dosage: 140 MILLIGRAM, Q2WK
     Route: 058
     Dates: start: 2023

REACTIONS (5)
  - Blood test abnormal [Unknown]
  - Blood triglycerides increased [Unknown]
  - Drug ineffective [Unknown]
  - Product storage error [Unknown]
  - Product administration error [Unknown]

NARRATIVE: CASE EVENT DATE: 20250720
